FAERS Safety Report 7224553-3 (Version None)
Quarter: 2011Q1

REPORT INFORMATION
  Report Type: 
  Country: None (occurrence: None)
  Receive Date: 20110113
  Receipt Date: 20101223
  Transmission Date: 20110831
  Serious: No
  Sender: FDA-Public Use
  Company Number: US-BAYER-2010-008953

PATIENT
  Sex: Male

DRUGS (4)
  1. PERCOCET [Concomitant]
     Dosage: UNK
  2. EVEROLIMUS [Concomitant]
     Dosage: UNK
     Dates: end: 20101207
  3. SUTENT [Concomitant]
     Dosage: UNK
     Dates: end: 20101119
  4. NEXAVAR [Suspect]
     Dosage: 2 PO AM AND PM
     Route: 048
     Dates: start: 20101213

REACTIONS (1)
  - FATIGUE [None]
